FAERS Safety Report 7180527-2 (Version None)
Quarter: 2010Q4

REPORT INFORMATION
  Report Type: 
  Country: None (occurrence: None)
  Receive Date: 20101221
  Receipt Date: 20101208
  Transmission Date: 20110411
  Serious: Yes (Other)
  Sender: FDA-Public Use
  Company Number: NL-ELI_LILLY_AND_COMPANY-NL201012002271

PATIENT
  Sex: Female
  Weight: 62 kg

DRUGS (14)
  1. FORTEO [Suspect]
     Indication: OSTEOPOROSIS
     Dosage: 20 UG, DAILY (1/D)
     Route: 058
     Dates: start: 20101006, end: 20101116
  2. METAMIDE [Concomitant]
     Indication: FLUID RETENTION
     Dosage: 1 MG, DAILY (1/D)
     Route: 065
     Dates: start: 20100817
  3. CALCI CHEW D3 [Concomitant]
     Indication: OSTEOPOROSIS
     Dosage: UNK UNK, DAILY (1/D)
     Route: 048
     Dates: start: 20100917
  4. CELEBREX [Concomitant]
     Indication: MUSCULOSKELETAL PAIN
     Dosage: 100 MG, 2/D
     Route: 065
     Dates: start: 20100817
  5. DORMICUM [Concomitant]
     Indication: INSOMNIA
     Dosage: 7.5 MG, DAILY (1/D)
     Route: 048
     Dates: start: 20100817
  6. FOLIC ACID [Concomitant]
     Dosage: 5 MG, WEEKLY (1/W)
     Route: 065
  7. METHOTREXATE [Concomitant]
     Dosage: 2.5 MG, WEEKLY (1/W)
     Route: 065
     Dates: start: 20101012
  8. LANOXIN [Concomitant]
     Indication: CARDIAC DISORDER
     Dosage: 0.125 MG, DAILY (1/D)
     Route: 065
     Dates: start: 20100817
  9. NEBIVOLOL [Concomitant]
     Indication: CARDIAC DISORDER
     Dosage: 5 MG, DAILY (1/D)
     Route: 048
     Dates: start: 20100817
  10. NEXIUM [Concomitant]
     Indication: PROPHYLAXIS
     Dosage: 40 MG, DAILY (1/D)
     Route: 048
     Dates: start: 20101013
  11. PREDNISOLONE [Concomitant]
     Dosage: 5 MG, DAILY (1/D)
     Route: 048
     Dates: start: 20100817
  12. SIMVASTATIN [Concomitant]
     Indication: BLOOD CHOLESTEROL INCREASED
     Dosage: 20 MG, DAILY (1/D)
     Route: 048
     Dates: start: 20100817
  13. ASCAL [Concomitant]
     Indication: TRANSIENT ISCHAEMIC ATTACK
     Dosage: 100 MG, DAILY (1/D)
     Route: 048
     Dates: start: 20101022
  14. ANTAGEL /00002901/ [Concomitant]
     Dosage: UNK UNK, DAILY (1/D)
     Route: 048
     Dates: start: 20100929

REACTIONS (3)
  - DIZZINESS [None]
  - NAUSEA [None]
  - TRANSIENT ISCHAEMIC ATTACK [None]
